FAERS Safety Report 5596019-8 (Version None)
Quarter: 2007Q4

REPORT INFORMATION
  Report Type: 
  Country: None (occurrence: None)
  Receive Date: 20071218
  Receipt Date: 20061023
  Transmission Date: 20080405
  Serious: Yes (Hospitalization, Other)
  Sender: FDA-Public Use
  Company Number: 2006134793

PATIENT
  Age: 37 Year
  Sex: Female
  Weight: 105.2 kg

DRUGS (1)
  1. BEXTRA [Suspect]
     Indication: PAIN
     Dosage: (10 MG)

REACTIONS (2)
  - DEPRESSION [None]
  - THROMBOSIS [None]
